FAERS Safety Report 7972767-7 (Version None)
Quarter: 2011Q4

REPORT INFORMATION
  Report Type: 
  Country: None (occurrence: None)
  Receive Date: 20111213
  Receipt Date: 20111208
  Transmission Date: 20120403
  Serious: Yes (Hospitalization, Disabling)
  Sender: FDA-Public Use
  Company Number: FR-ROCHE-770910

PATIENT
  Sex: Male
  Weight: 66 kg

DRUGS (4)
  1. MYCOPHENOLATE MOFETIL (CELLCEPT) [Suspect]
     Indication: TRANSPLANT REJECTION
     Route: 002
  2. PROGRAF [Concomitant]
  3. PREDNISONE TAB [Suspect]
     Indication: RENAL TRANSPLANT
     Dosage: DATE OF LAST DOSE PRIOR TO SAE: 30 JANUARY 2011
     Route: 002
  4. EVEROLIMUS [Suspect]
     Indication: TRANSPLANT REJECTION
     Dosage: PERMANENTLY DISCONTINUED
     Route: 002
     Dates: start: 20100703, end: 20110408

REACTIONS (2)
  - HYPERCREATINAEMIA [None]
  - TRANSPLANT REJECTION [None]
